FAERS Safety Report 6293837-8 (Version None)
Quarter: 2009Q3

REPORT INFORMATION
  Report Type: 
  Country: None (occurrence: None)
  Receive Date: 20090803
  Receipt Date: 20090723
  Transmission Date: 20100115
  Serious: Yes (Other)
  Sender: FDA-Public Use
  Company Number: PHHY2009MX31533

PATIENT
  Age: 57 Year
  Sex: Female

DRUGS (2)
  1. FEMARA [Suspect]
     Indication: BREAST NEOPLASM
     Dosage: 2.5 MG/DAY
     Route: 048
     Dates: start: 20040801, end: 20080901
  2. HORMONES AND RELATED AGENTS [Concomitant]

REACTIONS (5)
  - ARTHRALGIA [None]
  - DIABETES MELLITUS [None]
  - HEPATITIS C [None]
  - VAGINAL HAEMORRHAGE [None]
  - WEIGHT DECREASED [None]
